FAERS Safety Report 23266655 (Version 2)
Quarter: 2023Q4

REPORT INFORMATION
  Report Type: Spontaneous
  Country: EE (occurrence: EE)
  Receive Date: 20231206
  Receipt Date: 20231215
  Transmission Date: 20240109
  Serious: Yes (Death)
  Sender: FDA-Public Use
  Company Number: EE-NEBO-PC012645

PATIENT
  Sex: Male

DRUGS (1)
  1. IRON ISOMALTOSIDE 1000 [Suspect]
     Active Substance: IRON ISOMALTOSIDE 1000
     Indication: Product used for unknown indication
     Route: 050

REACTIONS (1)
  - Anaphylactoid reaction [Fatal]

NARRATIVE: CASE EVENT DATE: 20231101
